FAERS Safety Report 17885869 (Version 1)
Quarter: 2020Q2

REPORT INFORMATION
  Report Type: Spontaneous
  Country: GB (occurrence: GB)
  Receive Date: 20200611
  Receipt Date: 20200611
  Transmission Date: 20200714
  Serious: Yes (Hospitalization)
  Sender: FDA-Public Use
  Company Number: GB-MYLANLABS-2020M1055545

PATIENT
  Age: 77 Year
  Sex: Male
  Weight: 125 kg

DRUGS (3)
  1. INSULIN [Concomitant]
     Active Substance: INSULIN NOS
     Dosage: UNK
  2. IRON [Concomitant]
     Active Substance: IRON
     Dosage: UNK
  3. WARFARIN [Suspect]
     Active Substance: WARFARIN
     Indication: PULMONARY EMBOLISM
     Dosage: UNK
     Route: 048
     Dates: start: 2004

REACTIONS (11)
  - Orthostatic hypotension [Unknown]
  - COVID-19 [Unknown]
  - Presyncope [Unknown]
  - Dehydration [Unknown]
  - Dizziness [Unknown]
  - International normalised ratio increased [Recovered/Resolved]
  - Pallor [Unknown]
  - Upper gastrointestinal haemorrhage [Not Recovered/Not Resolved]
  - Anaemia [Unknown]
  - Delirium [Unknown]
  - Hypophagia [Unknown]

NARRATIVE: CASE EVENT DATE: 202004
